FAERS Safety Report 4306850-4 (Version None)
Quarter: 2004Q1

REPORT INFORMATION
  Report Type: 
  Country: None (occurrence: None)
  Receive Date: 20040225
  Receipt Date: 20040210
  Transmission Date: 20041129
  Serious: Yes (Hospitalization)
  Sender: FDA-Public Use
  Company Number: EWC031137092

PATIENT
  Age: 63 Year
  Sex: Female

DRUGS (2)
  1. ZYPREXA [Suspect]
     Indication: BIPOLAR I DISORDER
     Dates: start: 20031004
  2. LITHIUM CARBONATE [Concomitant]

REACTIONS (4)
  - CEREBELLAR SYNDROME [None]
  - GENERALISED OEDEMA [None]
  - NEUROTOXICITY [None]
  - THERAPEUTIC AGENT TOXICITY [None]
